FAERS Safety Report 9829869 (Version 1)
Quarter: 2014Q1

REPORT INFORMATION
  Report Type: Spontaneous
  Country: GB (occurrence: GB)
  Receive Date: 20140120
  Receipt Date: 20140120
  Transmission Date: 20141002
  Serious: Yes (Other)
  Sender: FDA-Public Use
  Company Number: GB-ROCHE-1335049

PATIENT
  Sex: Female

DRUGS (7)
  1. RIBAVIRIN [Suspect]
     Indication: HEPATITIS C
     Route: 065
     Dates: start: 20131018, end: 20131031
  2. PEG-INTERFERON ALFA 2A [Suspect]
     Indication: HEPATITIS C
     Route: 058
     Dates: start: 20131018, end: 20131031
  3. INCIVO [Suspect]
     Indication: HEPATITIS C
     Route: 048
     Dates: start: 20131018, end: 20131031
  4. CETIRIZINE [Concomitant]
     Indication: MULTIPLE ALLERGIES
     Route: 065
  5. MILK THISTLE [Concomitant]
     Route: 065
     Dates: end: 201310
  6. PARACETAMOL [Concomitant]
     Indication: HEADACHE
     Route: 065
  7. CALCICHEW D3 FORTE [Concomitant]
     Indication: VITAMIN D DECREASED
     Route: 065

REACTIONS (1)
  - Blood creatinine increased [Recovered/Resolved]
